FAERS Safety Report 24357801 (Version 1)
Quarter: 2024Q3

REPORT INFORMATION
  Report Type: Spontaneous
  Country: BE (occurrence: BE)
  Receive Date: 20240924
  Receipt Date: 20240924
  Transmission Date: 20241017
  Serious: Yes (Death, Other)
  Sender: JOHNSON AND JOHNSON
  Company Number: BE-JNJFOC-20240959232

PATIENT
  Age: 76 Year
  Sex: Male

DRUGS (2)
  1. AKEEGA [Suspect]
     Active Substance: ABIRATERONE ACETATE\NIRAPARIB TOSYLATE MONOHYDRATE
     Indication: Prostate cancer metastatic
     Route: 048
     Dates: start: 20240904, end: 20240911
  2. PREDNISONE [Concomitant]
     Active Substance: PREDNISONE
     Indication: Prostate cancer metastatic
     Dates: start: 20240904

REACTIONS (3)
  - Death [Fatal]
  - Renal impairment [Unknown]
  - Device occlusion [Unknown]
